FAERS Safety Report 15379580 (Version 1)
Quarter: 2018Q3

REPORT INFORMATION
  Report Type: Spontaneous
  Country: US (occurrence: US)
  Receive Date: 20180913
  Receipt Date: 20180913
  Transmission Date: 20181010
  Serious: No
  Sender: FDA-Public Use
  Company Number: US-ASTELLAS-2017US048743

PATIENT
  Age: 91 Year
  Sex: Male

DRUGS (3)
  1. XTANDI [Suspect]
     Active Substance: ENZALUTAMIDE
     Route: 065
     Dates: start: 20171119
  2. XTANDI [Suspect]
     Active Substance: ENZALUTAMIDE
     Route: 065
     Dates: start: 20171120
  3. XTANDI [Suspect]
     Active Substance: ENZALUTAMIDE
     Indication: PROSTATE CANCER
     Route: 065

REACTIONS (7)
  - Confusional state [Unknown]
  - Abdominal pain [Not Recovered/Not Resolved]
  - Feeling abnormal [Unknown]
  - Abdominal pain upper [Unknown]
  - Fatigue [Unknown]
  - Nervousness [Unknown]
  - Drug dose omission [Unknown]

NARRATIVE: CASE EVENT DATE: 201711
